FAERS Safety Report 8201405-3 (Version None)
Quarter: 2012Q1

REPORT INFORMATION
  Report Type: 
  Country: None (occurrence: None)
  Receive Date: 20120312
  Receipt Date: 20120307
  Transmission Date: 20120608
  Serious: Yes (Death)
  Sender: FDA-Public Use
  Company Number: US-CELGENEUS-163-21880-12010856

PATIENT
  Sex: Male
  Weight: 75.818 kg

DRUGS (10)
  1. ENALAPRIL MALEATE [Concomitant]
     Dosage: 2.5 MILLIGRAM
     Route: 065
  2. REVLIMID [Suspect]
     Indication: MULTIPLE MYELOMA
     Dosage: 10 MILLIGRAM
     Route: 048
     Dates: start: 20110804
  3. REVLIMID [Suspect]
     Dosage: 15 MILLIGRAM
     Route: 048
     Dates: start: 20110901, end: 20120105
  4. ACYCLOVIR [Concomitant]
     Dosage: 800 MILLIGRAM
     Route: 065
  5. METOPROLOL TARTRATE [Concomitant]
     Dosage: 50 MILLIGRAM
     Route: 065
  6. ACETAMINOPHEN W/ CODEINE TAB [Concomitant]
     Dosage: 300MG/6MG
     Route: 065
  7. AMLODIPINE [Concomitant]
     Dosage: 2.5 MILLIGRAM
     Route: 065
  8. CITALOPRAM [Concomitant]
     Dosage: 10 MILLIGRAM
     Route: 065
  9. OXYCODONE HCL [Concomitant]
     Dosage: 15 MILLIGRAM
     Route: 065
  10. PROCHLORPERAZINE MALEATE [Concomitant]
     Dosage: 5 MILLIGRAM
     Route: 065

REACTIONS (1)
  - PULMONARY EMBOLISM [None]
